FAERS Safety Report 6204167-4 (Version None)
Quarter: 2009Q2

REPORT INFORMATION
  Report Type: 
  Country: None (occurrence: None)
  Receive Date: 20090527
  Receipt Date: 20090520
  Transmission Date: 20091009
  Serious: Yes (Other)
  Sender: FDA-Public Use
  Company Number: JP-MERCK-0901USA01443

PATIENT
  Age: 67 Year
  Sex: Female
  Weight: 37 kg

DRUGS (6)
  1. FOSAMAX [Suspect]
     Indication: OSTEOPOROSIS
     Route: 048
     Dates: start: 20071219, end: 20081222
  2. LOXONIN [Concomitant]
     Indication: PAIN
     Route: 048
  3. SELBEX [Concomitant]
     Indication: GASTROINTESTINAL DISORDER
     Route: 048
  4. CELESTAMINE [Concomitant]
     Indication: MUSCULOSKELETAL PAIN
     Route: 048
     Dates: start: 20000223
  5. RIMATIL [Concomitant]
     Indication: MUSCULOSKELETAL PAIN
     Route: 048
     Dates: start: 20020917
  6. MENTAX [Concomitant]
     Indication: TINEA PEDIS
     Route: 061
     Dates: start: 20080709

REACTIONS (1)
  - TRISMUS [None]
